FAERS Safety Report 7345254-7 (Version None)
Quarter: 2011Q1

REPORT INFORMATION
  Report Type: 
  Country: None (occurrence: None)
  Receive Date: 20110310
  Receipt Date: 20110301
  Transmission Date: 20110831
  Serious: Yes (Death, Hospitalization)
  Sender: FDA-Public Use
  Company Number: DZ-ELI_LILLY_AND_COMPANY-DZ201103000083

PATIENT
  Age: 33 Year
  Sex: Male

DRUGS (2)
  1. ZYPREXA [Suspect]
     Indication: SCHIZOPHRENIA
     Dosage: 10 MG, DAILY (1/D)
     Route: 048
     Dates: start: 20091101
  2. LARGACTIL [Concomitant]

REACTIONS (9)
  - GASTRIC HAEMORRHAGE [None]
  - AGITATION [None]
  - SCHIZOPHRENIA [None]
  - PLATELET COUNT DECREASED [None]
  - EATING DISORDER [None]
  - SLEEP DISORDER [None]
  - ABNORMAL BEHAVIOUR [None]
  - DEATH [None]
  - PANCREATITIS [None]
